FAERS Safety Report 5714254-2 (Version None)
Quarter: 2008Q2

REPORT INFORMATION
  Report Type: 
  Country: None (occurrence: None)
  Receive Date: 20080422
  Receipt Date: 20080422
  Transmission Date: 20081010
  Serious: Yes (Hospitalization)
  Sender: FDA-Public Use
  Company Number: None

PATIENT
  Age: 71 Year
  Sex: Male
  Weight: 112.04 kg

DRUGS (2)
  1. WARFARIN SODIUM [Suspect]
     Indication: ATRIAL FIBRILLATION
     Dosage: 37.5 MG QWEEK PO
     Route: 048
     Dates: start: 20000203, end: 20070919
  2. WARFARIN SODIUM [Suspect]
     Indication: CORONARY ARTERY DISEASE
     Dosage: 37.5 MG QWEEK PO
     Route: 048
     Dates: start: 20000203, end: 20070919

REACTIONS (5)
  - AGITATION [None]
  - ATRIAL FIBRILLATION [None]
  - DEHYDRATION [None]
  - HYPOTENSION [None]
  - SUBDURAL HAEMATOMA [None]
